FAERS Safety Report 19153592 (Version 2)
Quarter: 2021Q2

REPORT INFORMATION
  Report Type: Report from Study
  Country: PT (occurrence: PT)
  Receive Date: 20210419
  Receipt Date: 20210521
  Transmission Date: 20210717
  Serious: Yes (Disabling, Other)
  Sender: FDA-Public Use
  Company Number: PT-KYOWAKIRIN-2021BKK002273

PATIENT

DRUGS (5)
  1. MOGAMULIZUMAB [Suspect]
     Active Substance: MOGAMULIZUMAB
     Dosage: (CYCLE 8, DAY 1), CYCLICAL
     Route: 065
     Dates: start: 20210304, end: 20210304
  2. MOGAMULIZUMAB [Suspect]
     Active Substance: MOGAMULIZUMAB
     Dosage: (CYCLE 8, DAY 15), CYCLICAL
     Route: 065
     Dates: start: 20210318, end: 20210318
  3. MOGAMULIZUMAB [Suspect]
     Active Substance: MOGAMULIZUMAB
     Dosage: (CYCLE 7, DAY 5), CYCLICAL
     Route: 065
     Dates: start: 20210211, end: 20210211
  4. MOGAMULIZUMAB [Suspect]
     Active Substance: MOGAMULIZUMAB
     Indication: CUTANEOUS T-CELL LYMPHOMA
     Dosage: (CYCLE 7, DAY 1), CYCLICAL
     Route: 065
     Dates: start: 20210114, end: 20210114
  5. VALGANCICLOVIR. [Concomitant]
     Active Substance: VALGANCICLOVIR
     Indication: ANTIVIRAL PROPHYLAXIS
     Dosage: 900 MG, EVERY DAY
     Route: 065

REACTIONS (9)
  - Abdominal pain [Recovered/Resolved]
  - Mobility decreased [Unknown]
  - Back pain [Unknown]
  - Klebsiella infection [Recovered/Resolved]
  - Cytomegalovirus infection reactivation [Recovered/Resolved]
  - Nausea [Recovered/Resolved]
  - Pyelonephritis acute [Recovered/Resolved]
  - Pain [Unknown]
  - Urinary tract infection [Recovered/Resolved]

NARRATIVE: CASE EVENT DATE: 20210125
